FAERS Safety Report 10244251 (Version 1)
Quarter: 2014Q2

REPORT INFORMATION
  Report Type: Spontaneous
  Country: AU (occurrence: None)
  Receive Date: 20140616
  Receipt Date: 20140616
  Transmission Date: 20141212
  Serious: Yes (Other)
  Sender: FDA-Public Use
  Company Number: AU-AIKEM-000610

PATIENT
  Age: 67 Year
  Sex: Male

DRUGS (2)
  1. METFORMIN (METFORMIN) [Suspect]
     Indication: PRODUCT USED FOR UNKNOWN INDICATION
     Dosage: 1000.00000000-MG-2.0 / 0 TIMES PER-1.0DAYS?
  2. PERINDOPRIL (PERINDOPRIL) [Suspect]
     Indication: PRODUCT USED FOR UNKNOWN INDICATION
     Dosage: 5.00000000-MG-

REACTIONS (7)
  - Renal failure acute [None]
  - Lactic acidosis [None]
  - Sinus tachycardia [None]
  - Blood glucose increased [None]
  - Chest pain [None]
  - Dehydration [None]
  - Electrocardiogram ST segment depression [None]
